FAERS Safety Report 5845812-2 (Version None)
Quarter: 2008Q3

REPORT INFORMATION
  Report Type: 
  Country: None (occurrence: None)
  Receive Date: 20080731
  Receipt Date: 20080528
  Transmission Date: 20090109
  Serious: No
  Sender: FDA-Public Use
  Company Number: US200805006026

PATIENT
  Age: 50 Year
  Sex: Female
  Weight: 98.9 kg

DRUGS (12)
  1. BYETTA [Suspect]
     Indication: INSULIN-REQUIRING TYPE 2 DIABETES MELLITUS
     Dosage: 5 UG, 2/D, SUBCUTANEOUS : 10 UG, 2/D, SUBCUTANEOUS : 5 UG, 2/D, SUBCUTANEOUS
     Route: 058
     Dates: start: 20080501, end: 20080501
  2. BYETTA [Suspect]
     Indication: INSULIN-REQUIRING TYPE 2 DIABETES MELLITUS
     Dosage: 5 UG, 2/D, SUBCUTANEOUS : 10 UG, 2/D, SUBCUTANEOUS : 5 UG, 2/D, SUBCUTANEOUS
     Route: 058
     Dates: start: 20080501, end: 20080501
  3. BYETTA [Suspect]
     Indication: INSULIN-REQUIRING TYPE 2 DIABETES MELLITUS
     Dosage: 5 UG, 2/D, SUBCUTANEOUS : 10 UG, 2/D, SUBCUTANEOUS : 5 UG, 2/D, SUBCUTANEOUS
     Route: 058
     Dates: start: 20080525
  4. BYETTA [Suspect]
  5. INSULIN (INSULIN) [Concomitant]
  6. GLUCOPHAGE [Concomitant]
  7. ACTOS [Concomitant]
  8. LANTUS [Concomitant]
  9. BENICAR [Concomitant]
  10. LEXAPRO [Concomitant]
  11. ABILIFY [Concomitant]
  12. NEXIUM [Concomitant]

REACTIONS (7)
  - BLOOD GLUCOSE INCREASED [None]
  - DIARRHOEA [None]
  - HEART RATE INCREASED [None]
  - HOT FLUSH [None]
  - NAUSEA [None]
  - VOMITING [None]
  - WEIGHT DECREASED [None]
